FAERS Safety Report 5217707-9 (Version None)
Quarter: 2007Q1

REPORT INFORMATION
  Report Type: 
  Country: None (occurrence: None)
  Receive Date: 20061130
  Receipt Date: 20060815
  Transmission Date: 20070707
  Serious: Yes (Hospitalization)
  Sender: FDA-Public Use
  Company Number: US200601002101

PATIENT
  Age: 56 Year
  Sex: Male
  Weight: 86.2 kg

DRUGS (5)
  1. ZYPREXA [Suspect]
     Indication: INSOMNIA
     Dosage: 20 MG
     Dates: start: 19970623
  2. RISPERIDONE [Concomitant]
  3. CITALOPRAM HYDROBROMIDE [Concomitant]
  4. PAROXETINE [Concomitant]
  5. PREDNISOLONE [Concomitant]

REACTIONS (2)
  - DIABETES MELLITUS [None]
  - METABOLIC DISORDER [None]
